FAERS Safety Report 18213028 (Version 1)
Quarter: 2020Q3

REPORT INFORMATION
  Report Type: Spontaneous
  Country: US (occurrence: US)
  Receive Date: 20200829
  Receipt Date: 20200829
  Transmission Date: 20201103
  Serious: Yes (Hospitalization)
  Sender: FDA-Public Use
  Company Number: None

PATIENT
  Age: 23 Year
  Sex: Female
  Weight: 54 kg

DRUGS (2)
  1. DOTAREM [Suspect]
     Active Substance: GADOTERATE MEGLUMINE
     Indication: SCAN WITH CONTRAST
     Dosage: ?          OTHER FREQUENCY:ONCE;?
     Route: 042
  2. DOTAREM [Suspect]
     Active Substance: GADOTERATE MEGLUMINE
     Indication: MAGNETIC RESONANCE IMAGING
     Dosage: ?          OTHER FREQUENCY:ONCE;?
     Route: 042

REACTIONS (12)
  - Burning sensation [None]
  - Mental disorder [None]
  - Paralysis [None]
  - Quality of life decreased [None]
  - Gait disturbance [None]
  - Muscular weakness [None]
  - Amnesia [None]
  - Seizure [None]
  - Pruritus [None]
  - Bone pain [None]
  - Emotional disorder [None]
  - Paraesthesia [None]

NARRATIVE: CASE EVENT DATE: 20200717
